FAERS Safety Report 6228075-8 (Version None)
Quarter: 2009Q2

REPORT INFORMATION
  Report Type: 
  Country: None (occurrence: None)
  Receive Date: 20090610
  Receipt Date: 20090610
  Transmission Date: 20091009
  Serious: Yes (Other)
  Sender: FDA-Public Use
  Company Number: None

PATIENT
  Age: 37 Year
  Sex: Female
  Weight: 57.6068 kg

DRUGS (7)
  1. TYSABRI [Suspect]
     Indication: MULTIPLE SCLEROSIS
     Dosage: 1 MONTHLY INTRAVENOUS
     Route: 042
     Dates: start: 20081023, end: 20090101
  2. DESOGEN [Concomitant]
  3. DETROL LA [Concomitant]
  4. VITAMIN B-12 [Concomitant]
  5. LOVAZA [Concomitant]
  6. CALCIUM [Concomitant]
  7. VITAMIN D [Concomitant]

REACTIONS (8)
  - DYSPNOEA [None]
  - ERYTHEMA [None]
  - FEELING ABNORMAL [None]
  - FEELING COLD [None]
  - HYPERHIDROSIS [None]
  - HYPERVENTILATION [None]
  - MUSCLE SPASMS [None]
  - TREMOR [None]
